FAERS Safety Report 7241823-3 (Version None)
Quarter: 2011Q1

REPORT INFORMATION
  Report Type: 
  Country: None (occurrence: None)
  Receive Date: 20110124
  Receipt Date: 20110117
  Transmission Date: 20110831
  Serious: Yes (Death, Hospitalization)
  Sender: FDA-Public Use
  Company Number: NL-GENZYME-CLOF-1001348

PATIENT
  Sex: Male
  Weight: 37.6 kg

DRUGS (4)
  1. EVOLTRA [Suspect]
     Indication: ACUTE LEUKAEMIA
     Dosage: 40 MG, QDX5
     Route: 042
     Dates: start: 20101123, end: 20101127
  2. CYTARABINE [Suspect]
     Dosage: 40 MG, QD
     Route: 037
     Dates: start: 20101129, end: 20101129
  3. DAUNOXOME [Suspect]
     Indication: ACUTE LEUKAEMIA
     Dosage: 55 MG, QD
     Route: 042
     Dates: start: 20101123, end: 20101127
  4. CYTARABINE [Suspect]
     Indication: ACUTE LEUKAEMIA
     Dosage: 2800 MG, QD
     Route: 042
     Dates: start: 20101123, end: 20101127

REACTIONS (2)
  - FEBRILE NEUTROPENIA [None]
  - LEUKAEMIA [None]
